FAERS Safety Report 12274579 (Version 1)
Quarter: 2016Q2

REPORT INFORMATION
  Report Type: Spontaneous
  Country: US (occurrence: US)
  Receive Date: 20160415
  Receipt Date: 20160415
  Transmission Date: 20160815
  Serious: No
  Sender: FDA-Public Use
  Company Number: US-ALLERGAN-1506839US

PATIENT
  Age: 50 Year
  Sex: Female
  Weight: 81.18 kg

DRUGS (1)
  1. LATISSE [Suspect]
     Active Substance: BIMATOPROST
     Indication: GROWTH OF EYELASHES
     Dosage: 2 GTT, QHS
     Route: 003

REACTIONS (5)
  - Pigmentation disorder [Not Recovered/Not Resolved]
  - Rash [Recovering/Resolving]
  - Headache [Unknown]
  - Facial pain [Unknown]
  - Wrong technique in product usage process [Unknown]

NARRATIVE: CASE EVENT DATE: 20150405
